FAERS Safety Report 24965690 (Version 2)
Quarter: 2025Q1

REPORT INFORMATION
  Report Type: Spontaneous
  Country: AU (occurrence: AU)
  Receive Date: 20250213
  Receipt Date: 20250220
  Transmission Date: 20250409
  Serious: Yes (Life-Threatening, Hospitalization)
  Sender: SANOFI AVENTIS
  Company Number: AU-MLMSERVICE-20250130-PI385265- 00050-1

PATIENT
  Age: 8 Year
  Sex: Male

DRUGS (6)
  1. ANTI-THYMOCYTE GLOBULIN (RABBIT) NOS [Suspect]
     Active Substance: LAPINE T-LYMPHOCYTE IMMUNE GLOBULIN
     Indication: Aplastic anaemia
     Route: 042
     Dates: start: 202101, end: 202101
  2. AMLODIPINE [Suspect]
     Active Substance: AMLODIPINE BESYLATE
     Dosage: 5 MG, QD
     Route: 048
     Dates: start: 202101, end: 202302
  3. CYCLOSPORINE [Suspect]
     Active Substance: CYCLOSPORINE
     Indication: Aplastic anaemia
     Route: 048
     Dates: start: 202101, end: 202209
  4. CYCLOSPORINE [Suspect]
     Active Substance: CYCLOSPORINE
     Route: 048
     Dates: start: 202209
  5. ELTROMBOPAG [Concomitant]
     Active Substance: ELTROMBOPAG
     Indication: Aplastic anaemia
     Dosage: 75 MG FDAILY ROM DAY 1 TO +13MONTHS
     Route: 048
     Dates: start: 202101, end: 2022
  6. PENTAMIDINE [Concomitant]
     Active Substance: PENTAMIDINE
     Indication: Antifungal prophylaxis
     Dosage: 4 MG/KG (MG/KG), Q4W
     Dates: start: 202101, end: 202304

REACTIONS (4)
  - Gingival hypertrophy [Recovering/Resolving]
  - Gingival bleeding [Recovering/Resolving]
  - Gingival pain [Recovering/Resolving]
  - Tooth dislocation [Recovering/Resolving]

NARRATIVE: CASE EVENT DATE: 20220101
